FAERS Safety Report 4332903-0 (Version None)
Quarter: 2004Q1

REPORT INFORMATION
  Report Type: 
  Country: None (occurrence: None)
  Receive Date: 20040330
  Receipt Date: 20040309
  Transmission Date: 20041129
  Serious: Yes (Disabling)
  Sender: FDA-Public Use
  Company Number: 2004194751US

PATIENT
  Sex: 0

DRUGS (4)
  1. BEXTRA [Suspect]
     Indication: OSTEOARTHRITIS
     Dosage: 10 MG, QD, ORAL
     Route: 048
     Dates: start: 20031116, end: 20031117
  2. THYROID TAB [Concomitant]
  3. ANTIHYPERTENSIVES [Concomitant]
  4. CHOLESTEROL MEDICATIONS [Concomitant]

REACTIONS (1)
  - STEVENS-JOHNSON SYNDROME [None]
